FAERS Safety Report 9878307 (Version 1)
Quarter: 2014Q1

REPORT INFORMATION
  Report Type: Spontaneous
  Country: US (occurrence: US)
  Receive Date: 20140206
  Receipt Date: 20140206
  Transmission Date: 20141002
  Serious: No
  Sender: FDA-Public Use
  Company Number: US-TEVA-461328USA

PATIENT
  Sex: Female
  Weight: 54.48 kg

DRUGS (4)
  1. PLAN B ONE-STEP [Suspect]
     Indication: POST COITAL CONTRACEPTION
     Dosage: 1.5 MILLIGRAM DAILY;
     Route: 048
     Dates: start: 20131123, end: 20131123
  2. RECLIPSEN [Concomitant]
     Indication: ORAL CONTRACEPTION
  3. IRON SUPPLEMENT [Concomitant]
     Indication: SUPPLEMENTATION THERAPY
  4. VITAMIN B12 SUPPLEMENT [Concomitant]
     Indication: SUPPLEMENTATION THERAPY

REACTIONS (1)
  - Menstruation irregular [Not Recovered/Not Resolved]
